FAERS Safety Report 9647935 (Version 1)
Quarter: 2013Q4

REPORT INFORMATION
  Report Type: Spontaneous
  Country: US (occurrence: US)
  Receive Date: 20131028
  Receipt Date: 20131028
  Transmission Date: 20140711
  Serious: No
  Sender: FDA-Public Use
  Company Number: US-PFIZER INC-2013304704

PATIENT
  Sex: 0

DRUGS (1)
  1. LYRICA [Suspect]
     Dosage: UNK

REACTIONS (8)
  - Fatigue [Unknown]
  - Hypersomnia [Unknown]
  - Abnormal dreams [Unknown]
  - Hallucination [Unknown]
  - Disorientation [Recovering/Resolving]
  - Gait disturbance [Unknown]
  - Feeling abnormal [Unknown]
  - Euphoric mood [Unknown]
